FAERS Safety Report 5245775-7 (Version None)
Quarter: 2007Q1

REPORT INFORMATION
  Report Type: 
  Country: None (occurrence: None)
  Receive Date: 20070223
  Receipt Date: 20070215
  Transmission Date: 20070707
  Serious: Yes (Hospitalization)
  Sender: FDA-Public Use
  Company Number: IT-PFIZER INC-2007013104

PATIENT
  Age: 58 Year
  Sex: Male

DRUGS (2)
  1. CARDURA [Suspect]
     Indication: ESSENTIAL HYPERTENSION
     Dosage: DAILY DOSE:4MG-FREQ:DAILY
     Route: 048
     Dates: start: 20070202, end: 20070205
  2. BLOPRESS [Concomitant]
     Route: 048

REACTIONS (1)
  - CIRCULATORY COLLAPSE [None]
